FAERS Safety Report 18949647 (Version 1)
Quarter: 2021Q1

REPORT INFORMATION
  Report Type: Spontaneous
  Country: US (occurrence: US)
  Receive Date: 20210227
  Receipt Date: 20210227
  Transmission Date: 20210420
  Serious: No
  Sender: FDA-Public Use
  Company Number: US-ROCHE-2605370

PATIENT
  Age: 61 Year
  Sex: Female
  Weight: 100.79 kg

DRUGS (9)
  1. CYPROHEPTADINE. [Concomitant]
     Active Substance: CYPROHEPTADINE
     Indication: IDIOPATHIC URTICARIA
     Route: 048
  2. DOXEPIN [Concomitant]
     Active Substance: DOXEPIN
     Indication: IDIOPATHIC URTICARIA
     Dosage: QHS
     Route: 048
     Dates: start: 202001, end: 202003
  3. XOLAIR [Suspect]
     Active Substance: OMALIZUMAB
     Indication: IDIOPATHIC URTICARIA
     Route: 058
     Dates: start: 20190725
  4. XOLAIR [Suspect]
     Active Substance: OMALIZUMAB
     Indication: ANGIOEDEMA
     Route: 058
  5. HYDROXYZINE [Concomitant]
     Active Substance: HYDROXYZINE HYDROCHLORIDE
     Indication: IDIOPATHIC URTICARIA
     Dosage: 20?25 MG, QHS
     Route: 048
     Dates: end: 202003
  6. XOLAIR [Suspect]
     Active Substance: OMALIZUMAB
     Route: 058
     Dates: start: 202005, end: 202006
  7. PREDNISONE. [Concomitant]
     Active Substance: PREDNISONE
     Indication: IDIOPATHIC URTICARIA
     Dosage: 5?10 MG, 8 DAYS.
     Route: 048
  8. XOLAIR [Suspect]
     Active Substance: OMALIZUMAB
     Route: 058
     Dates: start: 201907, end: 201908
  9. ALLEGRA [Concomitant]
     Active Substance: FEXOFENADINE HYDROCHLORIDE
     Indication: IDIOPATHIC URTICARIA
     Dosage: 2?4 X 1 DAY
     Route: 048

REACTIONS (7)
  - Arthralgia [Recovering/Resolving]
  - Rash [Recovered/Resolved]
  - Peripheral swelling [Recovering/Resolving]
  - Lip swelling [Recovered/Resolved]
  - Dyspnoea [Recovered/Resolved]
  - Off label use [Unknown]
  - Intentional product use issue [Unknown]

NARRATIVE: CASE EVENT DATE: 201908
